FAERS Safety Report 15811204 (Version 3)
Quarter: 2020Q3

REPORT INFORMATION
  Report Type: Spontaneous
  Country: CZ (occurrence: CZ)
  Receive Date: 20190111
  Receipt Date: 20200701
  Transmission Date: 20201102
  Serious: Yes (Hospitalization, Other)
  Sender: FDA-Public Use
  Company Number: CZ-AUROBINDO-AUR-APL-2019-000030

PATIENT
  Age: 51 Year
  Sex: Male

DRUGS (3)
  1. SERTRALINE [Suspect]
     Active Substance: SERTRALINE HYDROCHLORIDE
     Indication: DEPRESSION
     Dosage: UNK
     Route: 065
  2. OXAZEPAM. [Concomitant]
     Active Substance: OXAZEPAM
     Indication: DEPRESSION
     Dosage: UNK
     Route: 065
  3. ACAMPROSATE [Concomitant]
     Active Substance: ACAMPROSATE
     Indication: DEPRESSION
     Dosage: UNK
     Route: 065

REACTIONS (5)
  - General physical health deterioration [Unknown]
  - Suicidal ideation [Recovering/Resolving]
  - Withdrawal syndrome [Recovered/Resolved]
  - Mood altered [Recovering/Resolving]
  - Somnolence [Recovering/Resolving]
